FAERS Safety Report 8494361-4 (Version None)
Quarter: 2012Q2

REPORT INFORMATION
  Report Type: 
  Country: None (occurrence: None)
  Receive Date: 20120405
  Receipt Date: 20090120
  Transmission Date: 20120825
  Serious: Yes (Other)
  Sender: FDA-Public Use
  Company Number: PHEH2009US00982

PATIENT
  Age: 59 Year
  Sex: Female
  Weight: 84.8 kg

DRUGS (11)
  1. RECLAST [Suspect]
     Indication: OSTEOPOROSIS
     Dosage: 5 MG, INTRAVENOUS
     Route: 042
     Dates: start: 20071101, end: 20081208
  2. RECLAST [Suspect]
     Indication: SPINAL COMPRESSION FRACTURE
     Dosage: 5 MG, INTRAVENOUS
     Route: 042
     Dates: start: 20071101, end: 20081208
  3. METHOTREXATE SODIUM [Concomitant]
  4. LIPITOR [Concomitant]
  5. CALCIUM CARBONATE [Concomitant]
  6. TRAMADOL HCL [Concomitant]
  7. BIAXIN [Concomitant]
  8. PROCARDIA [Concomitant]
  9. XALATAN [Concomitant]
  10. HYDROCHLOROTHIAZIDE [Concomitant]
  11. PEPCID [Concomitant]

REACTIONS (1)
  - BLOOD CREATININE INCREASED [None]
